FAERS Safety Report 4489043-X (Version None)
Quarter: 2004Q4

REPORT INFORMATION
  Report Type: 
  Country: None (occurrence: None)
  Receive Date: 20041029
  Receipt Date: 20041020
  Transmission Date: 20050328
  Serious: Yes (Hospitalization)
  Sender: FDA-Public Use
  Company Number: US-MERCK-0410USA03880

PATIENT
  Age: 72 Year
  Sex: Male

DRUGS (2)
  1. ZOCOR [Suspect]
     Route: 048
     Dates: start: 19940101
  2. ZOCOR [Suspect]
     Route: 048
     Dates: start: 20020101, end: 20040101

REACTIONS (3)
  - CORONARY ARTERY DISEASE [None]
  - PAIN IN EXTREMITY [None]
  - SPINAL COLUMN STENOSIS [None]
